FAERS Safety Report 11186070 (Version 1)
Quarter: 2015Q2

REPORT INFORMATION
  Report Type: Spontaneous
  Country: NZ (occurrence: NZ)
  Receive Date: 20150612
  Receipt Date: 20150612
  Transmission Date: 20150821
  Serious: Yes (Other)
  Sender: FDA-Public Use
  Company Number: NZ-PFIZER INC-2015195602

PATIENT
  Sex: Male

DRUGS (2)
  1. METOPROLOL [Interacting]
     Active Substance: METOPROLOL
     Dosage: UNK
  2. EFFEXOR XR [Suspect]
     Active Substance: VENLAFAXINE HYDROCHLORIDE
     Dosage: UNK

REACTIONS (5)
  - Drug interaction [Unknown]
  - Blood pressure increased [Unknown]
  - Multiple fractures [Unknown]
  - Pain [Unknown]
  - Fall [Unknown]
